FAERS Safety Report 10253065 (Version 3)
Quarter: 2014Q3

REPORT INFORMATION
  Report Type: Report from Study
  Country: JP (occurrence: JP)
  Receive Date: 20140623
  Receipt Date: 20140822
  Transmission Date: 20150326
  Serious: Yes (Death, Life-Threatening, Hospitalization, Other)
  Sender: FDA-Public Use
  Company Number: JP-PFIZER INC-2014104291

PATIENT
  Age: 56 Year
  Sex: Female
  Weight: 36.6 kg

DRUGS (32)
  1. MEDROL [Suspect]
     Active Substance: METHYLPREDNISOLONE
     Indication: EOSINOPHILIA
     Dosage: 20 MG, FREQUENCY UNKNOWN
     Route: 048
     Dates: start: 20100107
  2. ONON [Concomitant]
     Active Substance: PRANLUKAST
     Indication: RHINITIS ALLERGIC
     Dosage: UNK
     Route: 048
     Dates: end: 201101
  3. SLOW K [Concomitant]
     Active Substance: POTASSIUM CHLORIDE
     Indication: PULMONARY HYPERTENSION
     Dosage: UNK
     Route: 048
     Dates: end: 20110217
  4. FLUNASE /JPN/ [Concomitant]
     Indication: RHINITIS ALLERGIC
     Dosage: UNK
     Route: 045
     Dates: end: 201101
  5. FLOLAN [Concomitant]
     Active Substance: EPOPROSTENOL SODIUM
     Dosage: UNK
     Route: 042
     Dates: start: 20080210
  6. NEXAVAR [Concomitant]
     Active Substance: SORAFENIB
     Indication: PULMONARY HYPERTENSION
     Dosage: UNK
  7. REVATIO [Suspect]
     Active Substance: SILDENAFIL CITRATE
     Dosage: 20 MG, 3X/DAY
     Route: 048
     Dates: start: 20100126, end: 20100202
  8. REVATIO [Suspect]
     Active Substance: SILDENAFIL CITRATE
     Dosage: 90 MG/DAY (5X/DAY)
     Route: 048
     Dates: start: 20100321
  9. FLUITRAN [Suspect]
     Active Substance: TRICHLORMETHIAZIDE
     Indication: CARDIOVASCULAR EVENT PROPHYLAXIS
     Dosage: UNK
     Route: 048
  10. ALLEGRA [Concomitant]
     Active Substance: FEXOFENADINE HYDROCHLORIDE
     Indication: RHINITIS ALLERGIC
     Dosage: UNK
     Route: 048
     Dates: end: 201101
  11. DEPAS [Concomitant]
     Active Substance: ETIZOLAM
     Indication: PROPHYLAXIS
     Dosage: UNK
     Route: 048
     Dates: start: 201101
  12. REVATIO [Suspect]
     Active Substance: SILDENAFIL CITRATE
     Dosage: 80 MG/DAY (5X/DAY)
     Route: 048
     Dates: start: 20100314, end: 20100320
  13. MAGLAX [Concomitant]
     Active Substance: MAGNESIUM OXIDE
     Indication: CONSTIPATION PROPHYLAXIS
     Dosage: UNK
     Route: 048
  14. OMEPRAZON [Concomitant]
     Active Substance: OMEPRAZOLE
     Indication: GASTRITIS PROPHYLAXIS
     Dosage: UNK
     Route: 048
  15. PULMICORT TURBUHALER [Concomitant]
     Active Substance: BUDESONIDE
     Indication: ASTHMA
     Dosage: UNK
     Dates: end: 201101
  16. SENNA [Concomitant]
     Active Substance: SENNA LEAF\SENNOSIDES\SENNOSIDES A AND B
     Indication: CONSTIPATION PROPHYLAXIS
     Dosage: UNK
     Route: 048
  17. ALDACTONE [Suspect]
     Active Substance: SPIRONOLACTONE
     Dosage: 50 MG, 2X/DAY
     Route: 048
     Dates: end: 20110213
  18. TRACLEER [Concomitant]
     Active Substance: BOSENTAN\BOSENTAN MONOHYDRATE
     Indication: PULMONARY HYPERTENSION
     Dosage: UNK
     Route: 048
  19. MEVALOTIN [Concomitant]
     Active Substance: PRAVASTATIN SODIUM
     Indication: HYPERLIPIDAEMIA
     Dosage: UNK
     Route: 048
  20. LORAMET [Concomitant]
     Active Substance: LORMETAZEPAM
     Indication: ANXIETY DISORDER
     Dosage: UNK
     Route: 048
  21. REVATIO [Suspect]
     Active Substance: SILDENAFIL CITRATE
     Indication: PULMONARY ARTERIAL HYPERTENSION
     Dosage: 10 MG, 4X/DAY
     Route: 048
     Dates: start: 20100120, end: 20100125
  22. REVATIO [Suspect]
     Active Substance: SILDENAFIL CITRATE
     Dosage: 70 MG/DAY, DIVIDED IN 4 TIMES
     Route: 048
     Dates: start: 20100203, end: 20100313
  23. HALFDIGOXIN KY [Concomitant]
     Indication: CARDIOVASCULAR EVENT PROPHYLAXIS
     Dosage: UNK
     Route: 048
  24. SPIRIVA [Concomitant]
     Active Substance: TIOTROPIUM BROMIDE MONOHYDRATE
     Indication: ASTHMA
     Dosage: UNK
     Dates: end: 201101
  25. URSO [Concomitant]
     Active Substance: URSODIOL
     Indication: PROPHYLAXIS
     Dosage: UNK
     Route: 048
  26. MEILAX [Concomitant]
     Active Substance: ETHYL LOFLAZEPATE
     Indication: ANXIETY DISORDER
     Dosage: UNK
     Route: 048
  27. ALDACTONE [Suspect]
     Active Substance: SPIRONOLACTONE
     Indication: CARDIOVASCULAR EVENT PROPHYLAXIS
     Dosage: 50 MG, DAILY
     Route: 048
     Dates: start: 200810
  28. LASIX [Suspect]
     Active Substance: FUROSEMIDE
     Indication: CARDIOVASCULAR EVENT PROPHYLAXIS
     Dosage: 100 MG, UNK
  29. SLOW K [Concomitant]
     Active Substance: POTASSIUM CHLORIDE
     Indication: PROPHYLAXIS
  30. DOGMATYL [Concomitant]
     Active Substance: SULPIRIDE
     Indication: ANXIETY DISORDER
     Dosage: UNK
     Route: 048
  31. FERRO-GRADUMET [Concomitant]
     Active Substance: FERROUS SULFATE\FERROUS SULFATE, DRIED
     Indication: ANAEMIA PROPHYLAXIS
     Dosage: UNK
     Route: 048
  32. ADCIRCA [Concomitant]
     Active Substance: TADALAFIL
     Indication: PULMONARY HYPERTENSION
     Dosage: UNK
     Route: 048

REACTIONS (8)
  - Dehydration [Not Recovered/Not Resolved]
  - Cardiac failure [Fatal]
  - Acute prerenal failure [Fatal]
  - Hyperkalaemia [Not Recovered/Not Resolved]
  - Pyrexia [Not Recovered/Not Resolved]
  - Acute respiratory failure [Fatal]
  - Device related infection [Not Recovered/Not Resolved]
  - Epistaxis [Not Recovered/Not Resolved]

NARRATIVE: CASE EVENT DATE: 201101
